FAERS Safety Report 6526246-4 (Version None)
Quarter: 2009Q4

REPORT INFORMATION
  Report Type: 
  Country: None (occurrence: None)
  Receive Date: 20091228
  Receipt Date: 20091214
  Transmission Date: 20100525
  Serious: Yes (Other)
  Sender: FDA-Public Use
  Company Number: 2009S1008981

PATIENT
  Age: 58 Year
  Sex: Male

DRUGS (1)
  1. PHOSPHOSODA FLAVOR NOT SPECIFIED [Suspect]
     Indication: COLONOSCOPY
     Dosage: 90 ML;TOTAL;PO
     Route: 048
     Dates: start: 20051215

REACTIONS (1)
  - RENAL IMPAIRMENT [None]
